FAERS Safety Report 26201872 (Version 1)
Quarter: 2025Q4

REPORT INFORMATION
  Report Type: Spontaneous
  Country: ZA (occurrence: ZA)
  Receive Date: 20251226
  Receipt Date: 20251226
  Transmission Date: 20260118
  Serious: Yes (Hospitalization, Other)
  Sender: AZURITY PHARMACEUTICALS
  Company Number: ZA-AZURITY PHARMACEUTICALS, INC.-AZR202512-003843

PATIENT
  Age: 15 Year
  Sex: Male

DRUGS (3)
  1. AMLODIPINE [Suspect]
     Active Substance: AMLODIPINE BESYLATE
     Indication: Product used for unknown indication
     Dosage: 240 MILLIGRAM
     Route: 048
  2. ENALAPRIL [Suspect]
     Active Substance: ENALAPRIL
     Indication: Product used for unknown indication
     Dosage: 240 MILLIGRAM
     Route: 048
  3. SIMVASTATIN [Suspect]
     Active Substance: SIMVASTATIN
     Indication: Product used for unknown indication
     Dosage: 240 MILLIGRAM
     Route: 048

REACTIONS (4)
  - Distributive shock [Recovered/Resolved]
  - Multiple organ dysfunction syndrome [Recovered/Resolved]
  - Hypoglycaemic seizure [Recovered/Resolved]
  - Overdose [Unknown]
